FAERS Safety Report 11540030 (Version 1)
Quarter: 2015Q3

REPORT INFORMATION
  Report Type: Spontaneous
  Country: DK (occurrence: IT)
  Receive Date: 20150923
  Receipt Date: 20150923
  Transmission Date: 20151125
  Serious: Yes (Hospitalization)
  Sender: FDA-Public Use
  Company Number: IT-FRI-1000079637

PATIENT
  Age: 95 Year
  Sex: Male

DRUGS (7)
  1. CITALOPRAM [Suspect]
     Active Substance: CITALOPRAM HYDROBROMIDE
  2. TALOFEN 4G/100ML GOCCE ORALI/ PROMAZINE [Concomitant]
     Indication: INSOMNIA
     Route: 048
     Dates: end: 20150907
  3. CITALOPRAM [Suspect]
     Active Substance: CITALOPRAM HYDROBROMIDE
     Indication: POST-TRAUMATIC STRESS DISORDER
     Dosage: 20 MG
     Route: 048
     Dates: start: 20150703, end: 20150728
  4. AMLODIPINA/AMLODIPINE [Suspect]
     Active Substance: AMLODIPINE BESYLATE
     Indication: HYPERTENSION
     Dosage: 2.5 MG
     Route: 048
     Dates: start: 20150703, end: 20150728
  5. AMLODIPINA/AMLODIPINE [Suspect]
     Active Substance: AMLODIPINE BESYLATE
  6. SIRO 25 100MG/MELEVODOPA CARBIDOPA [Suspect]
     Active Substance: CARBIDOPA\MELEVODOPA
     Indication: PARKINSON^S DISEASE
     Dosage: 125 MG
     Route: 065
     Dates: start: 20141028, end: 20150728
  7. HALCION 125MICROGRAMMI COMPRESSE / TRIAZOLAM [Concomitant]
     Indication: INSOMNIA
     Route: 048
     Dates: start: 20150703, end: 20150728

REACTIONS (3)
  - Bradycardia [Recovered/Resolved]
  - Hypertensive crisis [Recovered/Resolved]
  - Product use issue [Unknown]

NARRATIVE: CASE EVENT DATE: 20150728
